FAERS Safety Report 10633423 (Version 1)
Quarter: 2014Q4

REPORT INFORMATION
  Report Type: Spontaneous
  Country: DE (occurrence: None)
  Receive Date: 20141203
  Receipt Date: 20141203
  Transmission Date: 20150529
  Serious: No
  Sender: FDA-Public Use
  Company Number: DE-LHC-2014109

PATIENT
  Age: 67 Year
  Sex: Female

DRUGS (4)
  1. CONOXIA (OXYGEN) (GAS FOR INHALATION) (VERUM) [Suspect]
     Active Substance: OXYGEN
     Indication: CHRONIC OBSTRUCTIVE PULMONARY DISEASE
     Dosage: 1.5 -2 1/MIN AT REST, 3 1/MIN AT STRESS
     Route: 055
     Dates: start: 20130412
  2. CONOXIA (OXYGEN) (GAS FOR INHALATION) (VERUM) [Suspect]
     Active Substance: OXYGEN
     Indication: RESPIRATORY FAILURE
     Dosage: 1.5 -2 1/MIN AT REST, 3 1/MIN AT STRESS
     Route: 055
     Dates: start: 20130412
  3. CONOXIA (OXYGEN) (GAS FOR INHALATION) (VERUM) [Suspect]
     Active Substance: OXYGEN
     Indication: RESPIRATORY GAS EXCHANGE DISORDER
     Dosage: 1.5 -2 1/MIN AT REST, 3 1/MIN AT STRESS
     Route: 055
     Dates: start: 20130412
  4. CONOXIA (OXYGEN) (GAS FOR INHALATION) (VERUM) [Suspect]
     Active Substance: OXYGEN
     Indication: EMPHYSEMA
     Dosage: 1.5 -2 1/MIN AT REST, 3 1/MIN AT STRESS
     Route: 055
     Dates: start: 20130412

REACTIONS (2)
  - Accidental exposure to product [None]
  - Frostbite [None]
